FAERS Safety Report 6568997-1 (Version None)
Quarter: 2010Q1

REPORT INFORMATION
  Report Type: 
  Country: None (occurrence: None)
  Receive Date: 20100203
  Receipt Date: 20100122
  Transmission Date: 20100710
  Serious: Yes (Hospitalization)
  Sender: FDA-Public Use
  Company Number: DE-B.I. PHARMACEUTICALS,INC./RIDGEFIELD-2010-DE-00365DE

PATIENT
  Age: 2 Year
  Sex: Male

DRUGS (1)
  1. CATAPRES [Suspect]
     Dosage: 0.15 MG
     Route: 048

REACTIONS (3)
  - AGITATION [None]
  - FATIGUE [None]
  - MEDICATION ERROR [None]
